FAERS Safety Report 5671635-3 (Version None)
Quarter: 2008Q1

REPORT INFORMATION
  Report Type: 
  Country: None (occurrence: None)
  Receive Date: 20080227
  Receipt Date: 20070424
  Transmission Date: 20080703
  Serious: Yes (Other)
  Sender: FDA-Public Use
  Company Number: DSA_29825_2007

PATIENT
  Age: 45 Year
  Sex: Female

DRUGS (5)
  1. CARDIZEM CD [Suspect]
     Indication: HEART RATE INCREASED
     Dosage: 180 MG QD ORAL
     Route: 048
     Dates: start: 20070422
  2. ATIVAN [Concomitant]
  3. TROPOL [Concomitant]
  4. CATAPRES /00171101 [Concomitant]
  5. CARDIZEM [Concomitant]

REACTIONS (2)
  - DRUG INEFFECTIVE [None]
  - HEART RATE INCREASED [None]
